FAERS Safety Report 23916479 (Version 5)
Quarter: 2024Q3

REPORT INFORMATION
  Report Type: Spontaneous
  Country: US (occurrence: US)
  Receive Date: 20240529
  Receipt Date: 20240919
  Transmission Date: 20241017
  Serious: Yes (Other)
  Sender: CALLIDITAS THERAPEUTICS
  Company Number: US-Calliditas-2024CAL00827

PATIENT
  Age: 62 Year
  Sex: Female
  Weight: 85.2 kg

DRUGS (2)
  1. TARPEYO [Suspect]
     Active Substance: BUDESONIDE
     Indication: IgA nephropathy
     Route: 048
     Dates: start: 20240503
  2. GABAPENTIN [Suspect]
     Active Substance: GABAPENTIN
     Indication: Product used for unknown indication

REACTIONS (27)
  - Oropharyngeal pain [Unknown]
  - Oral pain [Unknown]
  - Throat irritation [Unknown]
  - Sciatica [Not Recovered/Not Resolved]
  - Emotional disorder [Unknown]
  - Energy increased [Unknown]
  - Thirst [Unknown]
  - Dry mouth [Unknown]
  - Dysphonia [Unknown]
  - Dyspepsia [Unknown]
  - Eructation [Unknown]
  - Vomiting [Unknown]
  - Arthralgia [Unknown]
  - Hallucination [Unknown]
  - Crying [Unknown]
  - Dyspnoea [Unknown]
  - Fatigue [Unknown]
  - Muscle spasms [Unknown]
  - Weight increased [Unknown]
  - Swelling face [Unknown]
  - Taste disorder [Unknown]
  - Cough [Unknown]
  - Back pain [Unknown]
  - Dizziness [Unknown]
  - Retching [Unknown]
  - Growth of eyelashes [Unknown]
  - Hair growth abnormal [Unknown]
